FAERS Safety Report 9029871 (Version 1)
Quarter: 2013Q1

REPORT INFORMATION
  Report Type: Spontaneous
  Country: US (occurrence: US)
  Receive Date: 20130124
  Receipt Date: 20130124
  Transmission Date: 20140127
  Serious: Yes (Hospitalization)
  Sender: FDA-Public Use
  Company Number: US-TEVA-381569USA

PATIENT
  Age: 60 Year
  Sex: Female

DRUGS (1)
  1. MONTELUKAST [Suspect]
     Dates: start: 201210

REACTIONS (5)
  - Pulmonary hypertension [Recovering/Resolving]
  - Urticaria [Recovering/Resolving]
  - Rash [Recovering/Resolving]
  - Vision blurred [Recovering/Resolving]
  - Dyspnoea [Recovering/Resolving]
